FAERS Safety Report 10512714 (Version 2)
Quarter: 2014Q4

REPORT INFORMATION
  Report Type: Spontaneous
  Country: IT (occurrence: IT)
  Receive Date: 20141012
  Receipt Date: 20141024
  Transmission Date: 20150528
  Serious: Yes (Hospitalization)
  Sender: FDA-Public Use
  Company Number: IT-BRISTOL-MYERS SQUIBB COMPANY-21474259

PATIENT
  Age: 77 Year
  Sex: Female
  Weight: 90 kg

DRUGS (10)
  1. ALLOPURINOL. [Concomitant]
     Active Substance: ALLOPURINOL
     Indication: GOUT
  2. COUMADIN [Suspect]
     Active Substance: WARFARIN SODIUM
     Indication: ATRIAL FIBRILLATION
     Dosage: LAST DOSE: 22-SEP-2014
     Route: 048
     Dates: start: 20090101
  3. PANTOPRAZOLE [Concomitant]
     Active Substance: PANTOPRAZOLE SODIUM
  4. EUTIROX [Concomitant]
     Active Substance: LEVOTHYROXINE SODIUM
     Indication: HYPOTHYROIDISM
  5. ZOLOFT [Concomitant]
     Active Substance: SERTRALINE HYDROCHLORIDE
     Indication: DEPRESSION
  6. LYRICA [Concomitant]
     Active Substance: PREGABALIN
  7. SANDIMMUN NEORAL [Concomitant]
     Active Substance: CYCLOSPORINE
  8. MAGALDRATE [Concomitant]
     Active Substance: MAGALDRATE
  9. LANOXIN [Concomitant]
     Active Substance: DIGOXIN
  10. CARDIOASPIRIN [Suspect]
     Active Substance: ASPIRIN
     Route: 048
     Dates: end: 20140924

REACTIONS (4)
  - Hyperpyrexia [Recovered/Resolved]
  - Gastric haemorrhage [Recovered/Resolved]
  - Overdose [Unknown]
  - Haematemesis [Recovered/Resolved]

NARRATIVE: CASE EVENT DATE: 20140922
